FAERS Safety Report 5226130-2 (Version None)
Quarter: 2007Q1

REPORT INFORMATION
  Report Type: 
  Country: None (occurrence: None)
  Receive Date: 20070201
  Receipt Date: 20070125
  Transmission Date: 20070707
  Serious: Yes (Hospitalization)
  Sender: FDA-Public Use
  Company Number: JP-JPN-A200700065

PATIENT
  Age: 79 Year
  Sex: Female
  Weight: 42 kg

DRUGS (10)
  1. VALTREX [Suspect]
     Dosage: 1000MG THREE TIMES PER DAY
     Route: 048
     Dates: start: 20070104, end: 20070109
  2. CORTRIL [Concomitant]
     Indication: DIABETES INSIPIDUS
     Dosage: 10MG PER DAY
     Route: 048
     Dates: start: 20060904
  3. SIGMART [Concomitant]
     Indication: ANGINA PECTORIS
     Dosage: 5MG PER DAY
     Route: 048
  4. FRANDOL [Concomitant]
     Indication: ANGINA PECTORIS
     Dosage: 20MG PER DAY
     Route: 048
  5. ASPIRIN [Concomitant]
     Dosage: 100MG PER DAY
     Route: 048
  6. LIPITOR [Concomitant]
     Dosage: 5MG PER DAY
     Route: 048
  7. OMEPRAL [Concomitant]
     Indication: GASTRIC DISORDER
     Dosage: 10MG PER DAY
     Route: 048
  8. FERROMIA [Concomitant]
     Dosage: 50MG PER DAY
     Route: 048
  9. JAPANESE MEDICATION [Concomitant]
     Dosage: 5MG PER DAY
     Route: 048
  10. BONALON [Concomitant]
     Indication: OSTEOPOROSIS
     Dosage: 5MG PER DAY
     Route: 048

REACTIONS (4)
  - DIZZINESS [None]
  - MALAISE [None]
  - NAUSEA [None]
  - RENAL FAILURE ACUTE [None]
